FAERS Safety Report 17242653 (Version 5)
Quarter: 2020Q4

REPORT INFORMATION
  Report Type: Spontaneous
  Country: US (occurrence: US)
  Receive Date: 20200107
  Receipt Date: 20201215
  Transmission Date: 20210113
  Serious: No
  Sender: FDA-Public Use
  Company Number: US-SA-2020SA003337

PATIENT

DRUGS (2)
  1. DUPIXENT [Suspect]
     Active Substance: DUPILUMAB
     Indication: DERMATITIS
     Dosage: 300 MG, QOW
     Route: 058
     Dates: start: 20200804
  2. DUPIXENT [Suspect]
     Active Substance: DUPILUMAB
     Indication: DERMATITIS ATOPIC
     Dosage: 300 MG, QOW
     Route: 058
     Dates: start: 20191203

REACTIONS (8)
  - Therapeutic response delayed [Unknown]
  - Muscle twitching [Unknown]
  - Injection site pain [Recovered/Resolved]
  - COVID-19 [Unknown]
  - Ageusia [Recovering/Resolving]
  - Product dose omission in error [Unknown]
  - Eye disorder [Unknown]
  - Anosmia [Recovering/Resolving]

NARRATIVE: CASE EVENT DATE: 202008
